FAERS Safety Report 7125258-X (Version None)
Quarter: 2010Q4

REPORT INFORMATION
  Report Type: 
  Country: None (occurrence: None)
  Receive Date: 20101129
  Receipt Date: 20101119
  Transmission Date: 20110411
  Serious: Yes (Hospitalization)
  Sender: FDA-Public Use
  Company Number: PHHO2010DE16109

PATIENT
  Sex: Male
  Weight: 76 kg

DRUGS (3)
  1. SANDIMMUNE [Suspect]
     Indication: RENAL TRANSPLANT
     Dosage: 250 MG/D
     Dates: start: 20100920, end: 20101015
  2. MYFORTIC [Suspect]
     Indication: RENAL TRANSPLANT
     Dosage: 2160 MG/DAY
     Dates: start: 20100920, end: 20101015
  3. NO TREATMENT RECEIVED NOMED [Suspect]

REACTIONS (4)
  - NAUSEA [None]
  - OVERDOSE [None]
  - PANCYTOPENIA [None]
  - VIRAL INFECTION [None]
